FAERS Safety Report 19264804 (Version 2)
Quarter: 2021Q2

REPORT INFORMATION
  Report Type: Spontaneous
  Country: CZ (occurrence: CZ)
  Receive Date: 20210517
  Receipt Date: 20210524
  Transmission Date: 20210717
  Serious: Yes (Other)
  Sender: FDA-Public Use
  Company Number: CZ-AUROBINDO-AUR-APL-2021-018063

PATIENT
  Age: 48 Year
  Sex: Female

DRUGS (15)
  1. IBUPROFEN. [Suspect]
     Active Substance: IBUPROFEN
     Indication: MIGRAINE PROPHYLAXIS
     Dosage: 400 MILLIGRAM,, 8?10 DAYS IN MONTH
     Route: 065
  2. IBUPROFEN. [Suspect]
     Active Substance: IBUPROFEN
     Indication: MIGRAINE
  3. TOPIRAMATE. [Suspect]
     Active Substance: TOPIRAMATE
     Indication: MIGRAINE
     Dosage: 100 UNK
     Route: 048
  4. VENLAFAXINE [Suspect]
     Active Substance: VENLAFAXINE HYDROCHLORIDE
     Dosage: 100 MILLIGRAM, ONCE A DAY
     Route: 048
  5. SUMATRIPTAN. [Suspect]
     Active Substance: SUMATRIPTAN
     Indication: MIGRAINE PROPHYLAXIS
     Dosage: 50 MILLIGRAM,OVER 22 DAYS IN MONTH
     Route: 048
  6. TOPIRAMATE. [Suspect]
     Active Substance: TOPIRAMATE
     Indication: MIGRAINE PROPHYLAXIS
     Dosage: 75 MILLIGRAM, ONCE A DAY
     Route: 048
  7. VENLAFAXINE [Suspect]
     Active Substance: VENLAFAXINE HYDROCHLORIDE
     Indication: MIGRAINE
     Dosage: 150 MILLIGRAM, ONCE A DAY
     Route: 048
  8. SUMATRIPTAN. [Suspect]
     Active Substance: SUMATRIPTAN
     Indication: MIGRAINE
     Dosage: 100 UNK
     Route: 048
  9. VALPROATE [Suspect]
     Active Substance: VALPROIC ACID
     Dosage: 100 UNK
     Route: 048
  10. CINNARIZINE HCL [Concomitant]
     Indication: RASH
     Dosage: 75 MILLIGRAM, ONCE A DAY
     Route: 065
  11. PREGABALINE [Suspect]
     Active Substance: PREGABALIN
     Dosage: 100 MILLIGRAM, ONCE A DAY
     Route: 048
  12. AJOVY [Suspect]
     Active Substance: FREMANEZUMAB-VFRM
     Dosage: 100 MILLIGRAM, ONCE A DAY
     Route: 058
  13. VALPROATE [Suspect]
     Active Substance: VALPROIC ACID
     Indication: MIGRAINE
     Dosage: 800 MILLIGRAM, ONCE A DAY
     Route: 048
  14. PREGABALINE [Suspect]
     Active Substance: PREGABALIN
     Indication: MIGRAINE
     Dosage: 300 MILLIGRAM, ONCE A DAY
     Route: 048
  15. AJOVY [Suspect]
     Active Substance: FREMANEZUMAB-VFRM
     Indication: MIGRAINE
     Dosage: 225 MILLIGRAM (28 DAY)
     Route: 058

REACTIONS (8)
  - Drug ineffective [Unknown]
  - Therapeutic product effect incomplete [Unknown]
  - Fatigue [Unknown]
  - Drug intolerance [Unknown]
  - Product use issue [Unknown]
  - Injection site mass [Recovered/Resolved]
  - Medication overuse headache [Recovered/Resolved]
  - Migraine without aura [Recovered/Resolved]
